FAERS Safety Report 11993513 (Version 1)
Quarter: 2016Q1

REPORT INFORMATION
  Report Type: Spontaneous
  Country: US (occurrence: None)
  Receive Date: 20160202
  Receipt Date: 20160202
  Transmission Date: 20160526
  Serious: Yes (Hospitalization)
  Sender: FDA-Public Use
  Company Number: None

PATIENT
  Age: 75 Year
  Sex: Male
  Weight: 97.5 kg

DRUGS (1)
  1. BEVACIZUMAB (RHUMAB VEGF) [Suspect]
     Active Substance: BEVACIZUMAB
     Dates: end: 20160113

REACTIONS (6)
  - Chills [None]
  - Heart rate increased [None]
  - Body temperature increased [None]
  - Productive cough [None]
  - White blood cell count abnormal [None]
  - Pulmonary congestion [None]

NARRATIVE: CASE EVENT DATE: 20160126
